FAERS Safety Report 22638931 (Version 14)
Quarter: 2024Q1

REPORT INFORMATION
  Report Type: Report from Study
  Country: US (occurrence: US)
  Receive Date: 20230626
  Receipt Date: 20240218
  Transmission Date: 20240410
  Serious: Yes (Other)
  Sender: FDA-Public Use
  Company Number: US-ACADIA PHARMACEUTICALS INC.-ACA-2023-TRF-002459

PATIENT
  Age: 3 Year
  Sex: Female

DRUGS (15)
  1. DAYBUE [Suspect]
     Active Substance: TROFINETIDE
     Indication: Rett syndrome
     Dosage: 5 MILLILITER, BID
     Route: 065
     Dates: start: 20230516, end: 20230522
  2. DAYBUE [Suspect]
     Active Substance: TROFINETIDE
     Dosage: 5 MILLILITER, BID
     Route: 065
     Dates: start: 20230610
  3. DAYBUE [Suspect]
     Active Substance: TROFINETIDE
     Dosage: 30 MILLILITER, BID
     Route: 048
     Dates: end: 20230617
  4. DAYBUE [Suspect]
     Active Substance: TROFINETIDE
     Dosage: 30 MILLILITER, BID
     Route: 048
  5. DAYBUE [Suspect]
     Active Substance: TROFINETIDE
     Dosage: 20 MILLILITER, BID
     Route: 048
     Dates: start: 20230710
  6. DAYBUE [Suspect]
     Active Substance: TROFINETIDE
     Dosage: 15 MILLILITER, BID
     Route: 048
  7. DAYBUE [Suspect]
     Active Substance: TROFINETIDE
     Dosage: 20 MILLILITER, BID
     Route: 048
  8. DAYBUE [Suspect]
     Active Substance: TROFINETIDE
     Dosage: 15 MILLILITER, BID
     Route: 048
  9. DAYBUE [Suspect]
     Active Substance: TROFINETIDE
     Dosage: 17 MILLILITER, BID
     Route: 048
  10. DAYBUE [Suspect]
     Active Substance: TROFINETIDE
     Dosage: 18 MILLILITER, BID
     Route: 048
  11. DAYBUE [Suspect]
     Active Substance: TROFINETIDE
     Dosage: 20 MILLILITER, BID
     Route: 048
     Dates: start: 20240124
  12. FIBER [Concomitant]
  13. SIMETHICONE (DIMETHICONE) [Concomitant]
     Active Substance: DIMETHICONE
  14. TYLENOL [Concomitant]
     Active Substance: ACETAMINOPHEN
  15. VITAMIN D3 [Concomitant]
     Active Substance: CHOLECALCIFEROL

REACTIONS (19)
  - Pneumonia [Recovered/Resolved]
  - Pneumonia viral [Recovered/Resolved]
  - Seizure [Not Recovered/Not Resolved]
  - Social anxiety disorder [Not Recovered/Not Resolved]
  - Flatulence [Not Recovered/Not Resolved]
  - Gastrooesophageal reflux disease [Not Recovered/Not Resolved]
  - Underdose [Unknown]
  - Abdominal discomfort [Unknown]
  - Ill-defined disorder [Unknown]
  - Dehydration [Not Recovered/Not Resolved]
  - Blood glucose decreased [Not Recovered/Not Resolved]
  - Gastroenteritis viral [Not Recovered/Not Resolved]
  - Gastric infection [Not Recovered/Not Resolved]
  - Increased appetite [Recovered/Resolved]
  - Diarrhoea [Recovered/Resolved]
  - Diarrhoea [Recovered/Resolved]
  - Diarrhoea [Recovering/Resolving]
  - Anxiety [Not Recovered/Not Resolved]
  - Diarrhoea [Recovered/Resolved]

NARRATIVE: CASE EVENT DATE: 20230501
